FAERS Safety Report 9510243 (Version 1)
Quarter: 2013Q3

REPORT INFORMATION
  Report Type: Spontaneous
  Country: US (occurrence: US)
  Receive Date: 20130909
  Receipt Date: 20130909
  Transmission Date: 20140515
  Serious: No
  Sender: FDA-Public Use
  Company Number: US-BRISTOL-MYERS SQUIBB COMPANY-18698159

PATIENT
  Age: 68 Year
  Sex: Female

DRUGS (14)
  1. ABILIFY [Suspect]
     Dosage: ALSO TAKING HALF
  2. LAMICTAL [Concomitant]
  3. LAMOTRIGINE [Concomitant]
  4. WELLBUTRIN [Concomitant]
  5. LEXAPRO [Concomitant]
  6. TRAZODONE HCL [Concomitant]
  7. CLONAZEPAM [Concomitant]
  8. METFORMIN [Concomitant]
  9. VITAMIN D [Concomitant]
  10. TRIAMCINOLONE [Concomitant]
     Dosage: CREAM
  11. BETAMETHASONE [Concomitant]
     Dosage: CREAM
     Route: 061
  12. CALCIUM [Concomitant]
  13. GLIMEPIRIDE [Concomitant]
  14. ALCLOMETASONE DIPROPIONATE [Concomitant]
     Dosage: CREAM
     Route: 061

REACTIONS (2)
  - Tremor [Unknown]
  - Nausea [Not Recovered/Not Resolved]
